FAERS Safety Report 23796126 (Version 2)
Quarter: 2025Q2

REPORT INFORMATION
  Report Type: Report from Study
  Country: GB (occurrence: GB)
  Receive Date: 20240429
  Receipt Date: 20250613
  Transmission Date: 20250716
  Serious: Yes (Other)
  Sender: CELLTRION
  Company Number: GB-CELLTRION INC.-2024GB009561

PATIENT

DRUGS (2)
  1. ADALIMUMAB-AATY [Suspect]
     Active Substance: ADALIMUMAB-AATY
     Indication: Psoriasis
     Route: 058
     Dates: start: 202403
  2. ADALIMUMAB-AATY [Suspect]
     Active Substance: ADALIMUMAB-AATY
     Dosage: 40MG FOR INJECTION PENS - INJECT ONE PRE-FILLED PEN ON WEEK 1 AND THEN EVERY TWO WEEKS THEREAFTER
     Route: 058
     Dates: start: 202403

REACTIONS (5)
  - Blood pressure fluctuation [Unknown]
  - Mass excision [Unknown]
  - Malaise [Unknown]
  - Dizziness [Recovered/Resolved]
  - Intentional dose omission [Unknown]
